FAERS Safety Report 5274759-8 (Version None)
Quarter: 2007Q1

REPORT INFORMATION
  Report Type: 
  Country: None (occurrence: None)
  Receive Date: 20070321
  Receipt Date: 20060919
  Transmission Date: 20070707
  Serious: Yes (Hospitalization)
  Sender: FDA-Public Use
  Company Number: 231463K06USA

PATIENT
  Age: 25 Year
  Sex: Female

DRUGS (2)
  1. REBIF [Suspect]
     Indication: MULTIPLE SCLEROSIS
     Dates: start: 20050825, end: 20060206
  2. TRIMESS (ORAL CONTRACEPTIVE NOS) [Concomitant]

REACTIONS (3)
  - OEDEMA PERIPHERAL [None]
  - PULMONARY THROMBOSIS [None]
  - THROMBOSIS [None]
